FAERS Safety Report 23586884 (Version 1)
Quarter: 2024Q1

REPORT INFORMATION
  Report Type: Spontaneous
  Country: US (occurrence: US)
  Receive Date: 20240301
  Receipt Date: 20240301
  Transmission Date: 20240410
  Serious: Yes (Hospitalization, Other)
  Sender: FDA-Public Use
  Company Number: US-FERRINGPH-2024FE00810

PATIENT

DRUGS (1)
  1. CLENPIQ [Suspect]
     Active Substance: ANHYDROUS CITRIC ACID\MAGNESIUM OXIDE\SODIUM PICOSULFATE
     Indication: Product used for unknown indication
     Dosage: 1 BOTTLE
     Route: 065
     Dates: start: 20240213

REACTIONS (2)
  - Atrial fibrillation [Unknown]
  - Syncope [Unknown]

NARRATIVE: CASE EVENT DATE: 20240201
